FAERS Safety Report 16161673 (Version 2)
Quarter: 2019Q2

REPORT INFORMATION
  Report Type: Spontaneous
  Country: US (occurrence: US)
  Receive Date: 20190405
  Receipt Date: 20190611
  Transmission Date: 20190711
  Serious: No
  Sender: FDA-Public Use
  Company Number: US-PFIZER INC-2019137727

PATIENT
  Age: 54 Year
  Sex: Female
  Weight: 55.34 kg

DRUGS (3)
  1. CHANTIX [Suspect]
     Active Substance: VARENICLINE TARTRATE
     Indication: SMOKING CESSATION THERAPY
     Dosage: 2 MG, DAILY
     Dates: start: 20190112
  2. CHANTIX [Suspect]
     Active Substance: VARENICLINE TARTRATE
     Dosage: 1 DF, ALTERNATE DAY
     Dates: start: 201903
  3. CHANTIX [Suspect]
     Active Substance: VARENICLINE TARTRATE
     Dosage: 1 MG, 2X/DAY
     Dates: start: 20190114

REACTIONS (6)
  - Bone pain [Recovering/Resolving]
  - Product use issue [Unknown]
  - Fatigue [Not Recovered/Not Resolved]
  - Neuralgia [Unknown]
  - Muscular weakness [Not Recovered/Not Resolved]
  - Back pain [Unknown]

NARRATIVE: CASE EVENT DATE: 201901
